FAERS Safety Report 4573867-4 (Version None)
Quarter: 2005Q1

REPORT INFORMATION
  Report Type: 
  Country: None (occurrence: None)
  Receive Date: 20050203
  Receipt Date: 20050201
  Transmission Date: 20050727
  Serious: Yes (Other)
  Sender: FDA-Public Use
  Company Number: 211469

PATIENT
  Sex: 0

DRUGS (1)
  1. XOLAIR [Suspect]

REACTIONS (1)
  - ANAPHYLACTIC SHOCK [None]
